FAERS Safety Report 9841034 (Version 3)
Quarter: 2014Q1

REPORT INFORMATION
  Report Type: Report from Study
  Country: FR (occurrence: FR)
  Receive Date: 20140124
  Receipt Date: 20140130
  Transmission Date: 20141002
  Serious: Yes (Hospitalization, Other)
  Sender: FDA-Public Use
  Company Number: FR-ASTELLAS-2013US012390

PATIENT
  Age: 22 Year
  Sex: Female
  Weight: 55 kg

DRUGS (3)
  1. TACROLIMUS OINTMENT [Suspect]
     Indication: DERMATITIS ATOPIC
     Dosage: 0.1 %, ONCE DAILY, TWICE WEEKLY
     Route: 061
     Dates: start: 20080112
  2. TACROLIMUS OINTMENT [Suspect]
     Dosage: 0.1 %, MONTHLY
     Route: 061
     Dates: start: 20060503
  3. XYZAL [Concomitant]
     Indication: HYPERSENSITIVITY
     Dosage: 1 G, UID/QD
     Route: 048

REACTIONS (2)
  - Off label use [Unknown]
  - Angioedema [Recovered/Resolved]
